FAERS Safety Report 12607953 (Version 1)
Quarter: 2016Q3

REPORT INFORMATION
  Report Type: Spontaneous
  Country: US (occurrence: US)
  Receive Date: 20160729
  Receipt Date: 20160729
  Transmission Date: 20161109
  Serious: Yes (Hospitalization)
  Sender: FDA-Public Use
  Company Number: US-LPDUSPRD-20160657

PATIENT
  Age: 55 Year
  Sex: Male

DRUGS (4)
  1. ONDANSETRON INJECTION (4420-01) [Suspect]
     Active Substance: ONDANSETRON
     Dosage: 4 MG
     Route: 042
  2. METHADONE [Suspect]
     Active Substance: METHADONE HYDROCHLORIDE
     Dosage: 80 MG
     Route: 048
  3. HEROIN [Concomitant]
     Active Substance: DIACETYLMORPHINE
     Dosage: DOSE UNKNOWN
     Route: 065
  4. CANNABINOID RECEPTOR AGONIST [Concomitant]
     Dosage: DOSE UNKNOWN
     Route: 065

REACTIONS (3)
  - Drug interaction [Unknown]
  - Electrocardiogram QT prolonged [Unknown]
  - Torsade de pointes [Unknown]
